FAERS Safety Report 25654017 (Version 1)
Quarter: 2025Q3

REPORT INFORMATION
  Report Type: Spontaneous
  Country: US (occurrence: US)
  Receive Date: 20250807
  Receipt Date: 20250807
  Transmission Date: 20251020
  Serious: No
  Sender: SANOFI AVENTIS
  Company Number: US-SA-2025SA230927

PATIENT
  Sex: Male
  Weight: 90.78 kg

DRUGS (2)
  1. DUPIXENT [Suspect]
     Active Substance: DUPILUMAB
     Indication: Illness
     Dosage: 300 MG, QOW
     Route: 058
  2. CLOMID [Concomitant]
     Active Substance: CLOMIPHENE CITRATE

REACTIONS (2)
  - Injection site pain [Unknown]
  - Injection site bruising [Unknown]
